FAERS Safety Report 10307585 (Version 1)
Quarter: 2014Q3

REPORT INFORMATION
  Report Type: Report from Study
  Country: CO (occurrence: CO)
  Receive Date: 20140716
  Receipt Date: 20140716
  Transmission Date: 20150326
  Serious: Yes (Hospitalization)
  Sender: FDA-Public Use
  Company Number: CO-SA-2014SA090571

PATIENT
  Age: 47 Year
  Sex: Female

DRUGS (3)
  1. APIDRA [Suspect]
     Active Substance: INSULIN GLULISINE
     Indication: DIABETES MELLITUS
     Dosage: DOSE:20 UNIT(S)
     Route: 058
     Dates: start: 2012, end: 20140624
  2. LANTUS [Suspect]
     Active Substance: INSULIN GLARGINE
     Indication: DIABETES MELLITUS
     Dosage: DOSE:20 UNIT(S)
     Route: 058
     Dates: start: 2012
  3. LANTUS [Suspect]
     Active Substance: INSULIN GLARGINE
     Indication: DIABETES MELLITUS
     Dosage: DOSE:30 UNIT(S)
     Route: 058

REACTIONS (3)
  - Hyperglycaemia [Recovered/Resolved]
  - Hypertensive crisis [Recovered/Resolved]
  - Pain [Recovered/Resolved]

NARRATIVE: CASE EVENT DATE: 201405
